FAERS Safety Report 17397748 (Version 5)
Quarter: 2021Q1

REPORT INFORMATION
  Report Type: Spontaneous
  Country: IT (occurrence: IT)
  Receive Date: 20200210
  Receipt Date: 20210302
  Transmission Date: 20210419
  Serious: Yes (Hospitalization, Other)
  Sender: FDA-Public Use
  Company Number: IT-MYLANLABS-2020M1002038

PATIENT
  Age: 81 Year
  Sex: Male

DRUGS (5)
  1. HYDROCHLOROTHIAZIDE. [Concomitant]
     Active Substance: HYDROCHLOROTHIAZIDE
     Indication: HYPERTENSION
     Dosage: 20 UNK
     Route: 065
  2. HYDROCHLOROTHIAZIDE. [Concomitant]
     Active Substance: HYDROCHLOROTHIAZIDE
     Dosage: 12 MILLIGRAM
     Route: 065
  3. OLMESARTAN MEDOXOMIL. [Suspect]
     Active Substance: OLMESARTAN MEDOXOMIL
     Indication: HYPERTENSION
     Dosage: 20 MG, QD
     Route: 065
  4. OLMESARTAN MEDOXOMIL. [Suspect]
     Active Substance: OLMESARTAN MEDOXOMIL
     Dosage: UNK
  5. HYDROCHLOROTHIAZIDE/OLMESARTAN MEDOXOMIL [Suspect]
     Active Substance: HYDROCHLOROTHIAZIDE\OLMESARTAN MEDOXOMIL
     Indication: HYPERTENSION
     Dosage: 1 DOSAGE FORM, QD(20/12 MG, QD)

REACTIONS (29)
  - Vitamin B12 decreased [Unknown]
  - Ascites [Recovered/Resolved]
  - Therapy partial responder [Unknown]
  - Gastrointestinal disorder [Recovering/Resolving]
  - Gastrointestinal erosion [Recovering/Resolving]
  - Pleural effusion [Recovered/Resolved]
  - Blood folate decreased [Unknown]
  - Diarrhoea [Unknown]
  - Generalised oedema [Recovered/Resolved]
  - Malabsorption [Recovered/Resolved]
  - Lymphangiectasia intestinal [Recovering/Resolving]
  - Red blood cell sedimentation rate increased [Unknown]
  - C-reactive protein increased [Unknown]
  - Asthenia [Unknown]
  - Intestinal intraepithelial lymphocytes increased [Unknown]
  - Anaemia [Unknown]
  - Blood iron decreased [Unknown]
  - Electrolyte imbalance [Recovered/Resolved]
  - Diverticulitis [Recovering/Resolving]
  - Hypoalbuminaemia [Unknown]
  - Oedema peripheral [Recovered/Resolved]
  - Hypernatraemia [Recovered/Resolved]
  - Gastrointestinal mucosa hyperaemia [Recovering/Resolving]
  - Intestinal villi atrophy [Recovering/Resolving]
  - Sprue-like enteropathy [Recovering/Resolving]
  - Hypokalaemia [Unknown]
  - Fluid retention [Recovered/Resolved]
  - Body mass index increased [Unknown]
  - Atrophy [Unknown]
